FAERS Safety Report 7627106-8 (Version None)
Quarter: 2011Q3

REPORT INFORMATION
  Report Type: 
  Country: None (occurrence: None)
  Receive Date: 20110721
  Receipt Date: 20110718
  Transmission Date: 20111222
  Serious: Yes (Other)
  Sender: FDA-Public Use
  Company Number: CA-PFIZER INC-2011162259

PATIENT
  Sex: Male

DRUGS (3)
  1. MICARDIS [Concomitant]
     Indication: HYPERTENSION
     Dosage: 80 MG, 1X/DAY
     Route: 048
  2. XALATAN [Suspect]
     Indication: GLAUCOMA
     Dosage: 1 DROP/EYE ONCE DAILY
     Route: 047
  3. METFORMIN [Concomitant]
     Indication: DIABETES MELLITUS
     Dosage: 500 MG, 2X/DAY
     Route: 048

REACTIONS (1)
  - PARKINSON'S DISEASE [None]
